FAERS Safety Report 8517804-6 (Version None)
Quarter: 2012Q3

REPORT INFORMATION
  Report Type: 
  Country: None (occurrence: None)
  Receive Date: 20120718
  Receipt Date: 20120711
  Transmission Date: 20120928
  Serious: Yes (Other)
  Sender: FDA-Public Use
  Company Number: US-BAYER-2011-063316

PATIENT
  Age: 27 Year
  Sex: Female
  Weight: 124.72 kg

DRUGS (12)
  1. ALDOSTERONE ANTAGONISTS [Concomitant]
  2. SYNTHROID [Concomitant]
     Indication: THYROID DISORDER
     Dosage: 112 ?G, UNK
  3. YAZ [Suspect]
     Dosage: UNK
     Dates: start: 20070501, end: 20090801
  4. EFFEXOR [Concomitant]
     Dosage: 75 MG, UNK
  5. CEPHALEXIN [Concomitant]
     Dosage: 250 MG, UNK
  6. REGLAN [Concomitant]
     Dosage: 10 MG, UNK
  7. NOR-QD [Concomitant]
     Dosage: UNK
     Dates: start: 20090828
  8. CAMILA [Concomitant]
  9. MICARDIS [Concomitant]
     Indication: BLOOD PRESSURE ABNORMAL
     Dosage: 40 MG, UNK
     Dates: start: 20070901
  10. SPIRONOLACTONE [Concomitant]
     Dosage: UNK
  11. METFORMIN HYDROCHLORIDE [Concomitant]
     Dosage: 1000 MG, BID
  12. ACIPHEX [Concomitant]
     Dosage: 20 MG, UNK

REACTIONS (8)
  - INJURY [None]
  - PAIN [None]
  - GENERAL PHYSICAL HEALTH DETERIORATION [None]
  - EMOTIONAL DISTRESS [None]
  - THROMBOSIS [None]
  - CHOLECYSTITIS ACUTE [None]
  - GALLBLADDER INJURY [None]
  - DEEP VEIN THROMBOSIS [None]
